FAERS Safety Report 22095306 (Version 5)
Quarter: 2023Q4

REPORT INFORMATION
  Report Type: Report from Study
  Country: US (occurrence: US)
  Receive Date: 20230314
  Receipt Date: 20231003
  Transmission Date: 20240109
  Serious: No
  Sender: FDA-Public Use
  Company Number: US-JAZZ-2023-US-000915

PATIENT
  Sex: Female

DRUGS (5)
  1. XYREM [Suspect]
     Active Substance: SODIUM OXYBATE
     Indication: Narcolepsy
     Dosage: 2.75 GRAM, BID
  2. XYREM [Suspect]
     Active Substance: SODIUM OXYBATE
     Indication: Cataplexy
     Dosage: 3 GRAM,BID
  3. XYREM [Suspect]
     Active Substance: SODIUM OXYBATE
     Indication: Somnolence
     Dosage: 3.25 GRAM,BID
  4. FERROUS SULFATE [Concomitant]
     Active Substance: FERROUS SULFATE
     Indication: Product used for unknown indication
     Dosage: UNK
     Dates: start: 20230103
  5. VITAMINS [Concomitant]
     Active Substance: VITAMINS
     Indication: Product used for unknown indication
     Dosage: UNK
     Dates: start: 20230103

REACTIONS (6)
  - Eye irritation [Unknown]
  - Abdominal pain upper [Unknown]
  - Decreased appetite [Unknown]
  - Nausea [Unknown]
  - Weight decreased [Unknown]
  - Product administration interrupted [Unknown]
